FAERS Safety Report 5283072-4 (Version None)
Quarter: 2007Q2

REPORT INFORMATION
  Report Type: 
  Country: None (occurrence: None)
  Receive Date: 20070402
  Receipt Date: 20070319
  Transmission Date: 20071010
  Serious: Yes (Other)
  Sender: FDA-Public Use
  Company Number: US-ELI_LILLY_AND_COMPANY-US200703000768

PATIENT
  Age: 15 Year
  Sex: Male

DRUGS (2)
  1. STRATTERA [Suspect]
     Indication: ATTENTION DEFICIT/HYPERACTIVITY DISORDER
     Dosage: 60 MG, EACH MORNING
     Dates: start: 20040801, end: 20050201
  2. STRATTERA [Suspect]
     Dosage: 60 MG, EACH EVENING
     Dates: start: 20040801, end: 20050201

REACTIONS (6)
  - ABDOMINAL PAIN [None]
  - CHROMATURIA [None]
  - FATIGUE [None]
  - JAUNDICE [None]
  - LIVER FUNCTION TEST ABNORMAL [None]
  - PRESCRIBED OVERDOSE [None]
